FAERS Safety Report 9709782 (Version 1)
Quarter: 2013Q4

REPORT INFORMATION
  Report Type: Report from Study
  Country: GB (occurrence: GB)
  Receive Date: 20131126
  Receipt Date: 20131126
  Transmission Date: 20140711
  Serious: Yes (Death, Hospitalization)
  Sender: FDA-Public Use
  Company Number: GB-BRISTOL-MYERS SQUIBB COMPANY-19846609

PATIENT
  Age: 73 Year
  Sex: Female

DRUGS (3)
  1. CETUXIMAB [Suspect]
     Indication: OESOPHAGEAL CARCINOMA
     Dates: end: 20111205
  2. CISPLATIN [Suspect]
     Indication: OESOPHAGEAL CARCINOMA
  3. CAPECITABINE [Suspect]
     Indication: OESOPHAGEAL CARCINOMA

REACTIONS (1)
  - Pulmonary embolism [Fatal]
